FAERS Safety Report 8390889-6 (Version None)
Quarter: 2012Q2

REPORT INFORMATION
  Report Type: 
  Country: None (occurrence: None)
  Receive Date: 20120529
  Receipt Date: 20120516
  Transmission Date: 20120825
  Serious: Yes (Other)
  Sender: FDA-Public Use
  Company Number: GB-JNJFOC-20110605738

PATIENT
  Sex: Female
  Weight: 78 kg

DRUGS (2)
  1. INFLIXIMAB, RECOMBINANT [Suspect]
     Indication: RHEUMATOID ARTHRITIS
     Route: 042
     Dates: start: 20030312
  2. METHOTREXATE [Concomitant]
     Dates: start: 20030115

REACTIONS (1)
  - SKIN CANCER [None]
